FAERS Safety Report 23539936 (Version 2)
Quarter: 2024Q1

REPORT INFORMATION
  Report Type: Spontaneous
  Country: EG (occurrence: EG)
  Receive Date: 20240219
  Receipt Date: 20240308
  Transmission Date: 20240409
  Serious: No
  Sender: FDA-Public Use
  Company Number: EG-SA-SAC20240122000271

PATIENT
  Age: 30 Year
  Sex: Female

DRUGS (1)
  1. ENOXAPARIN SODIUM [Suspect]
     Active Substance: ENOXAPARIN SODIUM
     Dosage: 60 MG, QD
     Route: 058
     Dates: start: 202309

REACTIONS (1)
  - Maternal exposure during pregnancy [Unknown]
